FAERS Safety Report 6102724-7 (Version None)
Quarter: 2009Q1

REPORT INFORMATION
  Report Type: 
  Country: None (occurrence: None)
  Receive Date: 20090227
  Receipt Date: 20090219
  Transmission Date: 20090719
  Serious: Yes (Hospitalization)
  Sender: FDA-Public Use
  Company Number: 6049145

PATIENT
  Age: 82 Year
  Sex: Female

DRUGS (12)
  1. BISOPROLOL FUMARATE [Suspect]
     Indication: DRUG USE FOR UNKNOWN INDICATION
     Dosage: ORAL
     Route: 048
     Dates: end: 20080701
  2. CORDARONE [Suspect]
     Indication: DRUG USE FOR UNKNOWN INDICATION
     Dosage: ORAL
     Route: 048
     Dates: end: 20080701
  3. ARIMIDEX [Concomitant]
  4. ACETAMINOPHEN [Concomitant]
  5. POTASSIUM CHLORIDE [Concomitant]
  6. ESIDRIX [Concomitant]
  7. IKOREL (NICORANDIL) [Concomitant]
  8. PRAZEPAM [Concomitant]
  9. PREVISCAN (FLUINDIONE) [Concomitant]
  10. ATORVASTATIN CALCIUM [Concomitant]
  11. RAMIPRIL [Concomitant]
  12. VOLTARENE EMULGEL (DICLOFENAC SODIUM) [Concomitant]

REACTIONS (6)
  - CARDIAC FAILURE [None]
  - CONGESTIVE CARDIOMYOPATHY [None]
  - DRUG INTERACTION [None]
  - HYPERKALAEMIA [None]
  - PETECHIAE [None]
  - SINUS BRADYCARDIA [None]
